FAERS Safety Report 9349158 (Version 2)
Quarter: 2013Q3

REPORT INFORMATION
  Report Type: Spontaneous
  Country: US (occurrence: US)
  Receive Date: 20130614
  Receipt Date: 20130906
  Transmission Date: 20140515
  Serious: Yes (Other)
  Sender: FDA-Public Use
  Company Number: US-BAYER-2013-070137

PATIENT
  Age: 35 Year
  Sex: Female
  Weight: 98 kg

DRUGS (5)
  1. YASMIN [Suspect]
  2. KEFLEX [Concomitant]
     Indication: ERYTHEMA
  3. KEFLEX [Concomitant]
     Indication: SWELLING
  4. VICODIN [Concomitant]
  5. DIFLUCAN [Concomitant]
     Indication: VULVOVAGINAL MYCOTIC INFECTION
     Dosage: UNK
     Dates: start: 20060202

REACTIONS (2)
  - Deep vein thrombosis [None]
  - Thrombophlebitis superficial [None]
